FAERS Safety Report 15253112 (Version 2)
Quarter: 2018Q4

REPORT INFORMATION
  Report Type: Spontaneous
  Country: US (occurrence: US)
  Receive Date: 20180807
  Receipt Date: 20181102
  Transmission Date: 20190204
  Serious: No
  Sender: FDA-Public Use
  Company Number: US-RADIUS HEALTH INC.-2018US001554

PATIENT
  Sex: Female

DRUGS (2)
  1. TYMLOS [Suspect]
     Active Substance: ABALOPARATIDE
     Indication: OSTEOPOROSIS POSTMENOPAUSAL
     Dosage: 80 MCG, ONCE DAILY
     Route: 058
     Dates: start: 20180410
  2. TYMLOS [Suspect]
     Active Substance: ABALOPARATIDE
     Dosage: 80 MCG, ONCE DAILY
     Route: 058
     Dates: start: 20180423

REACTIONS (9)
  - Walking aid user [Not Recovered/Not Resolved]
  - Joint dislocation [Not Recovered/Not Resolved]
  - Eye injury [Unknown]
  - Contusion [Unknown]
  - Fall [Unknown]
  - Pain in extremity [Unknown]
  - Spinal pain [Not Recovered/Not Resolved]
  - Nausea [Unknown]
  - Adverse event [Unknown]
